FAERS Safety Report 14707055 (Version 2)
Quarter: 2022Q4

REPORT INFORMATION
  Report Type: Spontaneous
  Country: FR (occurrence: FR)
  Receive Date: 20180403
  Receipt Date: 20221228
  Transmission Date: 20230113
  Serious: Yes (Other)
  Sender: FDA-Public Use
  Company Number: None

PATIENT
  Age: 47 Year
  Sex: Female
  Weight: 57 kg

DRUGS (1)
  1. HUMIRA [Suspect]
     Active Substance: ADALIMUMAB
     Indication: Crohn^s disease
     Route: 058
     Dates: start: 201608, end: 201807

REACTIONS (3)
  - Vulval disorder [Recovering/Resolving]
  - Skin exfoliation [Not Recovered/Not Resolved]
  - Pustule [Recovering/Resolving]

NARRATIVE: CASE EVENT DATE: 20180101
